FAERS Safety Report 6649049-9 (Version None)
Quarter: 2010Q1

REPORT INFORMATION
  Report Type: 
  Country: None (occurrence: None)
  Receive Date: 20100319
  Receipt Date: 20100308
  Transmission Date: 20100710
  Serious: Yes (Hospitalization)
  Sender: FDA-Public Use
  Company Number: 008422

PATIENT
  Sex: Male

DRUGS (7)
  1. KEPPRA [Suspect]
     Dosage: 500 MG; THREE DOSES TAKEN ORAL
     Route: 048
     Dates: start: 20100205, end: 20100206
  2. NIMOTOP (NIMOTOP) (NOT SPECIFIED) [Suspect]
     Dosage: INTRAVENOUS (NOT OTHERWISE SPECIFIED), ORAL
     Route: 042
     Dates: start: 20100205, end: 20100207
  3. NIMOTOP (NIMOTOP) (NOT SPECIFIED) [Suspect]
     Dosage: INTRAVENOUS (NOT OTHERWISE SPECIFIED), ORAL
     Route: 042
     Dates: start: 20100208, end: 20100212
  4. VISIPAQUE      /01044301/ (VISAPAQUE) (NOT SPECIFIED) [Suspect]
     Dosage: SINGLE USE INTRAVENOUS (NOT OTHERWISE SPECIFIED)
     Route: 042
     Dates: start: 20100205, end: 20100205
  5. IOMERON         /0123100/ (IOMERON) (NOT SPECIFIED) [Suspect]
     Dosage: SINGLE USE INTRAVENOUS (NOT OTHERWISE SPECIFIED)
     Route: 042
     Dates: start: 20100205, end: 20100205
  6. PERFALGAN [Concomitant]
  7. HEPARIN [Concomitant]

REACTIONS (1)
  - ACUTE GENERALISED EXANTHEMATOUS PUSTULOSIS [None]
